FAERS Safety Report 4928497-9 (Version None)
Quarter: 2006Q1

REPORT INFORMATION
  Report Type: 
  Country: None (occurrence: None)
  Receive Date: 20060223
  Receipt Date: 20060214
  Transmission Date: 20060701
  Serious: Yes (Hospitalization)
  Sender: FDA-Public Use
  Company Number: 2006-01-0061

PATIENT
  Age: 17 Year
  Sex: Male
  Weight: 46 kg

DRUGS (6)
  1. VIRAFERONPEG [Suspect]
     Indication: HEPATITIS C
     Dosage: 44.44 ?G QWK SUBCUTANEOU
     Route: 058
     Dates: start: 20051026
  2. RIBAVIRIN CAPSULE [Suspect]
     Indication: HEPATITIS C
     Dosage: 400 MG BID ORAL
     Route: 048
     Dates: start: 20051026
  3. ORACILLINE [Concomitant]
  4. ... [Concomitant]
  5. SPECIAFOLDINE [Concomitant]
  6. DOLIPRANE [Concomitant]

REACTIONS (2)
  - BONE PAIN [None]
  - INFLUENZA [None]
